FAERS Safety Report 5718135-X (Version None)
Quarter: 2008Q2

REPORT INFORMATION
  Report Type: 
  Country: None (occurrence: None)
  Receive Date: 20080425
  Receipt Date: 20080414
  Transmission Date: 20081010
  Serious: Yes (Other)
  Sender: FDA-Public Use
  Company Number: BR-JNJFOC-20080405796

PATIENT
  Age: 49 Year
  Sex: Female

DRUGS (12)
  1. TRAMAL RETARD [Suspect]
     Route: 048
  2. TRAMAL RETARD [Suspect]
     Route: 048
  3. TRAMAL RETARD [Suspect]
     Indication: PAIN
     Route: 048
  4. TRAMADOL HCL [Suspect]
     Indication: PAIN
     Route: 048
  5. LOSARTAN POTASSIUM [Concomitant]
     Route: 065
  6. ATENOLOL [Concomitant]
     Route: 065
  7. AMLODIPINE [Concomitant]
     Route: 065
  8. FRONTAL [Concomitant]
     Route: 065
  9. HYDROCHLOROTHIAZIDE [Concomitant]
     Route: 065
  10. PURAN T4 [Concomitant]
     Route: 065
  11. TEGRETOL [Concomitant]
     Route: 065
  12. MIOSAN [Concomitant]
     Route: 065

REACTIONS (7)
  - AUTOIMMUNE DISORDER [None]
  - BLOOD PRESSURE INCREASED [None]
  - DIARRHOEA [None]
  - DRUG INEFFECTIVE [None]
  - MEDICATION RESIDUE [None]
  - PHARMACEUTICAL PRODUCT COMPLAINT [None]
  - SOMNOLENCE [None]
